FAERS Safety Report 21493888 (Version 2)
Quarter: 2022Q4

REPORT INFORMATION
  Report Type: Spontaneous
  Country: GR (occurrence: GR)
  Receive Date: 20221021
  Receipt Date: 20221101
  Transmission Date: 20230113
  Serious: Yes (Other)
  Sender: FDA-Public Use
  Company Number: None

PATIENT
  Age: 47 Year
  Sex: Female
  Weight: 60 kg

DRUGS (2)
  1. ROSUVASTATIN [Suspect]
     Active Substance: ROSUVASTATIN
     Indication: Product used for unknown indication
     Dosage: UNIT DOSE : 20 MG , DURATION : 30 DAYS
     Route: 065
     Dates: start: 20210601, end: 20210701
  2. ATORVASTATIN [Suspect]
     Active Substance: ATORVASTATIN
     Indication: Product used for unknown indication
     Dosage: UNIT DOSE : 40 MG , THERAPY START DATE : NASK
     Dates: end: 20211201

REACTIONS (4)
  - Gastrointestinal disorder [Recovered/Resolved]
  - Myalgia [Recovered/Resolved]
  - Myalgia [Recovered/Resolved]
  - Gastrointestinal disorder [Recovered/Resolved]

NARRATIVE: CASE EVENT DATE: 20210601
